FAERS Safety Report 18711569 (Version 1)
Quarter: 2021Q1

REPORT INFORMATION
  Report Type: Spontaneous
  Country: LT (occurrence: LT)
  Receive Date: 20210107
  Receipt Date: 20210107
  Transmission Date: 20210419
  Serious: Yes (Hospitalization, Other)
  Sender: FDA-Public Use
  Company Number: LT-ACCORD-213993

PATIENT
  Age: 54 Year
  Sex: Female

DRUGS (1)
  1. SERTRALINE [Suspect]
     Active Substance: SERTRALINE HYDROCHLORIDE
     Route: 048

REACTIONS (4)
  - Brain oedema [Recovering/Resolving]
  - Seizure [Recovering/Resolving]
  - Hyponatraemia [Recovering/Resolving]
  - Suicide attempt [Unknown]
